FAERS Safety Report 5307593-0 (Version None)
Quarter: 2007Q2

REPORT INFORMATION
  Report Type: 
  Country: None (occurrence: None)
  Receive Date: 20070425
  Receipt Date: 20070413
  Transmission Date: 20071010
  Serious: Yes (Other)
  Sender: FDA-Public Use
  Company Number: US-PFIZER INC-2007030700

PATIENT
  Sex: Male
  Weight: 158.8 kg

DRUGS (4)
  1. CADUET [Suspect]
     Indication: BLOOD PRESSURE
     Dosage: TEXT:5/20MG; 5/20MG
     Dates: start: 20061201, end: 20070301
  2. CADUET [Suspect]
     Indication: BLOOD CHOLESTEROL
  3. AVALIDE [Concomitant]
     Dosage: DAILY DOSE:312.5MG
  4. AVANDAMET [Concomitant]
     Dosage: DAILY DOSE:4500MG

REACTIONS (4)
  - HIP SURGERY [None]
  - MUSCLE SPASMS [None]
  - MUSCULOSKELETAL STIFFNESS [None]
  - PAIN IN EXTREMITY [None]
